FAERS Safety Report 21195605 (Version 2)
Quarter: 2025Q1

REPORT INFORMATION
  Report Type: Spontaneous
  Country: US (occurrence: US)
  Receive Date: 20220810
  Receipt Date: 20250205
  Transmission Date: 20250409
  Serious: No
  Sender: BRISTOL-MYERS SQUIBB COMPANY
  Company Number: US-BRISTOL-MYERS SQUIBB COMPANY-2022-087925

PATIENT
  Age: 71 Year
  Sex: Female
  Weight: 59.87 kg

DRUGS (1)
  1. OPDIVO [Suspect]
     Active Substance: NIVOLUMAB
     Indication: Gastric cancer
     Dosage: DOSE : 240 MG;     FREQ : EVERY 14 DAYS

REACTIONS (1)
  - Intentional product use issue [Unknown]
